FAERS Safety Report 11388125 (Version 2)
Quarter: 2015Q4

REPORT INFORMATION
  Report Type: Spontaneous
  Country: US (occurrence: US)
  Receive Date: 20150817
  Receipt Date: 20151005
  Transmission Date: 20160304
  Serious: No
  Sender: FDA-Public Use
  Company Number: US-ASTRAZENECA-2015SE76653

PATIENT
  Sex: Female

DRUGS (1)
  1. SYMBICORT [Suspect]
     Active Substance: BUDESONIDE\FORMOTEROL FUMARATE DIHYDRATE
     Dosage: 160/4.5 MCG, 2 PUFFS,  TWICE A DAY
     Route: 055

REACTIONS (5)
  - Product quality issue [Unknown]
  - Device issue [Unknown]
  - Dyspnoea [Unknown]
  - Activities of daily living impaired [Unknown]
  - Drug effect decreased [Unknown]
